FAERS Safety Report 4935903-2 (Version None)
Quarter: 2006Q1

REPORT INFORMATION
  Report Type: 
  Country: None (occurrence: None)
  Receive Date: 20060302
  Receipt Date: 20060210
  Transmission Date: 20060701
  Serious: Yes (Other)
  Sender: FDA-Public Use
  Company Number: US200602002168

PATIENT
  Age: 82 Year
  Sex: Male

DRUGS (2)
  1. XIGRIS [Suspect]
     Indication: PNEUMONIA
     Dosage: INTRAVENOUS
     Route: 042
     Dates: start: 20060209, end: 20060210
  2. ANTIBIOTICS [Concomitant]

REACTIONS (1)
  - PLATELET COUNT DECREASED [None]
